FAERS Safety Report 25974512 (Version 1)
Quarter: 2025Q4

REPORT INFORMATION
  Report Type: Report from Study
  Country: CA (occurrence: CA)
  Receive Date: 20251029
  Receipt Date: 20251029
  Transmission Date: 20260118
  Serious: Yes (Other)
  Sender: ABBVIE
  Company Number: CA-ABBVIE-6517099

PATIENT
  Age: 80 Year
  Sex: Female

DRUGS (1)
  1. SKYRIZI [Suspect]
     Active Substance: RISANKIZUMAB-RZAA
     Indication: Crohn^s disease
     Dosage: LAST DOSE: SEP 2025
     Route: 058

REACTIONS (3)
  - Surgery [Unknown]
  - Melanocytic naevus [Unknown]
  - Incisional hernia [Unknown]

NARRATIVE: CASE EVENT DATE: 20140101
